FAERS Safety Report 11201754 (Version 1)
Quarter: 2015Q2

REPORT INFORMATION
  Report Type: Spontaneous
  Country: US (occurrence: None)
  Receive Date: 20150617
  Receipt Date: 20150617
  Transmission Date: 20150821
  Serious: Yes (Hospitalization)
  Sender: FDA-Public Use
  Company Number: NSR_02137_2015

PATIENT
  Age: 7 Month
  Sex: Male

DRUGS (2)
  1. BETAMETHASONE [Concomitant]
     Active Substance: BETAMETHASONE
  2. BACLOFEN. [Suspect]
     Active Substance: BACLOFEN
     Indication: WITHDRAWAL SYNDROME
     Dosage: THREE TIMES DAILY (MOTHER^S DOSE) TRANSPLACENTAL), (5MG/MLA-1/DAILY, DIVIDED INTO 4 DOSES (DAY 1-DAY3) ORAL), (0.25MGKG^-1 /DAILY (DAY 4-6) ORAL), (0.125MG/KGA-1/DAILY, DIVIDED INTO 2 DOSES EVERY 12 HOURS (DAY 7-10) ORAL), (0.067MG/KGA-1, SINGLE DOSE (DAY 11-13) ORAL)

REACTIONS (12)
  - Drug withdrawal syndrome neonatal [None]
  - Diarrhoea [None]
  - Caesarean section [None]
  - Tremor neonatal [None]
  - Skin discolouration [None]
  - Seizure [None]
  - Crying [None]
  - Hyperthermia [None]
  - Contusion [None]
  - Hypertonia [None]
  - Premature baby [None]
  - Maternal drugs affecting foetus [None]
